FAERS Safety Report 9081009 (Version 1)
Quarter: 2013Q1

REPORT INFORMATION
  Report Type: Report from Study
  Country: US (occurrence: US)
  Receive Date: 20130130
  Receipt Date: 20130130
  Transmission Date: 20140127
  Serious: No
  Sender: FDA-Public Use
  Company Number: US-ABBOTT-12P-163-0962080-00

PATIENT
  Sex: Female
  Weight: 55.84 kg

DRUGS (4)
  1. HUMIRA 40 MG/0.8 ML PEN [Suspect]
     Indication: PUSTULAR PSORIASIS
     Dates: start: 201204
  2. AMITRIPTYLINE [Suspect]
     Indication: ANXIETY
  3. CLONAZEPAM [Concomitant]
     Indication: ANXIETY
  4. WELLBUTRIN [Concomitant]
     Indication: DEPRESSION

REACTIONS (1)
  - Aggression [Not Recovered/Not Resolved]
